FAERS Safety Report 18394959 (Version 1)
Quarter: 2020Q4

REPORT INFORMATION
  Report Type: Spontaneous
  Country: US (occurrence: US)
  Receive Date: 20201016
  Receipt Date: 20201016
  Transmission Date: 20210114
  Serious: Yes (Disabling, Congenital Anomaly, Other)
  Sender: FDA-Public Use
  Company Number: US-PURDUE-USA-2020-0171216

PATIENT
  Sex: Female

DRUGS (1)
  1. HYDROCODONE BITARTRATE AND ACETAMINOPHEN [Suspect]
     Active Substance: ACETAMINOPHEN\HYDROCODONE BITARTRATE
     Indication: TOOTH EXTRACTION
     Dosage: UNK
     Dates: start: 2007

REACTIONS (7)
  - Disability [None]
  - Multiple congenital abnormalities [None]
  - Dependence [None]
  - Hydrocephalus [None]
  - Exposure during pregnancy [None]
  - Learning disability [None]
  - Cerebral palsy [None]

NARRATIVE: CASE EVENT DATE: 2007
